FAERS Safety Report 7592204-4 (Version None)
Quarter: 2011Q3

REPORT INFORMATION
  Report Type: 
  Country: None (occurrence: None)
  Receive Date: 20110706
  Receipt Date: 20110628
  Transmission Date: 20111222
  Serious: Yes (Other)
  Sender: FDA-Public Use
  Company Number: FR-JNJFOC-20110612286

PATIENT
  Sex: Male
  Weight: 68 kg

DRUGS (3)
  1. ABIRATERONE [Suspect]
     Indication: PROSTATE CANCER
     Route: 048
     Dates: start: 20110426, end: 20110524
  2. ABIRATERONE [Suspect]
     Route: 048
  3. PREDNISOLONE [Suspect]
     Indication: PROSTATE CANCER
     Route: 048
     Dates: start: 20110426, end: 20110524

REACTIONS (5)
  - DECREASED APPETITE [None]
  - PROSTATE CANCER [None]
  - ASTHENIA [None]
  - VOMITING [None]
  - DRUG INEFFECTIVE [None]
